FAERS Safety Report 8165498-4 (Version None)
Quarter: 2012Q1

REPORT INFORMATION
  Report Type: 
  Country: None (occurrence: None)
  Receive Date: 20120212
  Receipt Date: 20120212
  Transmission Date: 20120608
  Serious: Yes (Life-Threatening, Hospitalization)
  Sender: FDA-Public Use
  Company Number: None

PATIENT
  Sex: Male
  Weight: 58.9676 kg

DRUGS (1)
  1. AMBIEN [Suspect]
     Indication: SLEEP DISORDER
     Dosage: ONCE ORAL 07/20 BEDTIME
     Route: 048

REACTIONS (8)
  - FEMUR FRACTURE [None]
  - SOMNAMBULISM [None]
  - ECONOMIC PROBLEM [None]
  - PAIN [None]
  - DELUSION [None]
  - FALL [None]
  - STRESS [None]
  - ACTIVITIES OF DAILY LIVING IMPAIRED [None]
